FAERS Safety Report 4705818-3 (Version None)
Quarter: 2005Q3

REPORT INFORMATION
  Report Type: 
  Country: None (occurrence: None)
  Receive Date: 20050701
  Receipt Date: 20050620
  Transmission Date: 20060218
  Serious: Yes (Other)
  Sender: FDA-Public Use
  Company Number: US-JNJFOC-20050606160

PATIENT
  Sex: Female
  Weight: 70.76 kg

DRUGS (6)
  1. REMICADE [Suspect]
     Route: 042
  2. REMICADE [Suspect]
     Indication: RHEUMATOID ARTHRITIS
     Route: 042
  3. METHOTREXATE [Concomitant]
  4. SULFASALAZINE [Concomitant]
  5. GOLD COMPOUNDS [Concomitant]
  6. PREDNISONE [Concomitant]

REACTIONS (2)
  - CARDIOVASCULAR DISORDER [None]
  - SURGERY [None]
